FAERS Safety Report 21251237 (Version 4)
Quarter: 2022Q4

REPORT INFORMATION
  Report Type: Report from Study
  Country: CA (occurrence: CA)
  Receive Date: 20220825
  Receipt Date: 20221229
  Transmission Date: 20230113
  Serious: Yes (Other)
  Sender: FDA-Public Use
  Company Number: CA-JNJFOC-20220842035

PATIENT
  Age: 12 Year
  Sex: Male
  Weight: 29 kg

DRUGS (2)
  1. REMICADE [Suspect]
     Active Substance: INFLIXIMAB
     Indication: Crohn^s disease
     Route: 042
     Dates: start: 20200619
  2. REMICADE [Suspect]
     Active Substance: INFLIXIMAB
     Dosage: STAT DOSE 400 MG IV THEN CONTINUE WITH 400 MG EVERY 4 WEEKS.
     Route: 041

REACTIONS (15)
  - Crohn^s disease [Not Recovered/Not Resolved]
  - Nasopharyngitis [Unknown]
  - Anal fissure [Unknown]
  - Mouth ulceration [Unknown]
  - Odynophagia [Unknown]
  - Hypophagia [Unknown]
  - Asthenia [Unknown]
  - Pallor [Unknown]
  - Dark circles under eyes [Unknown]
  - Dehydration [Unknown]
  - Vomiting [Unknown]
  - Psoriasis [Unknown]
  - Hyperthermia [Recovered/Resolved]
  - Fatigue [Unknown]
  - Drug level decreased [Unknown]

NARRATIVE: CASE EVENT DATE: 20220801
